FAERS Safety Report 9228435 (Version 1)
Quarter: 2013Q1

REPORT INFORMATION
  Report Type: Spontaneous
  Country: US (occurrence: None)
  Receive Date: 20121010
  Receipt Date: 20121010
  Transmission Date: 20140127
  Serious: Yes (Other)
  Sender: FDA-Public Use
  Company Number: E2B_00000352

PATIENT
  Age: 59 Year
  Sex: Female
  Weight: 80.29 kg

DRUGS (4)
  1. LEVETIRACETAM TABLETS 500MG (500 MILLIGRAM) (LEVETIRACETAM) [Suspect]
     Dosage: 3000 MG (3000 DOSAGE FORMS,2 IN 1 D)
     Route: 048
  2. ROSUVASTATIN CALCIUM (CRESTOR) (TABLETS) [Concomitant]
  3. PREGABALIN (LYRICA) (CAPSULES) [Concomitant]
  4. LEVETIRACETAM (UNKNOWN) [Concomitant]

REACTIONS (1)
  - Convulsion [None]
